FAERS Safety Report 8875590 (Version 1)
Quarter: 2012Q4

REPORT INFORMATION
  Report Type: 
  Country: US (occurrence: US)
  Receive Date: 20121030
  Receipt Date: 20121030
  Transmission Date: 20130627
  Serious: No
  Sender: FDA-Public Use
  Company Number: US-ABBOTT-12P-163-0900139-00

PATIENT
  Age: 43 Year
  Sex: Male

DRUGS (3)
  1. KALETRA [Suspect]
     Indication: PRODUCT USED FOR UNKNOWN INDICATION
  2. CHIA SEEDS [Interacting]
     Indication: WEIGHT DECREASED
     Dates: end: 201201
  3. TRUVADA [Concomitant]
     Indication: PRODUCT USED FOR UNKNOWN INDICATION

REACTIONS (4)
  - Viral load increased [Unknown]
  - Weight decreased [Not Recovered/Not Resolved]
  - CD4 lymphocytes increased [Not Recovered/Not Resolved]
  - Drug interaction [Unknown]
